FAERS Safety Report 10039274 (Version 1)
Quarter: 2014Q1

REPORT INFORMATION
  Report Type: Spontaneous
  Country: CA (occurrence: CA)
  Receive Date: 20140326
  Receipt Date: 20140326
  Transmission Date: 20141002
  Serious: Yes (Other)
  Sender: FDA-Public Use
  Company Number: CA-PFIZER INC-2014080721

PATIENT
  Age: 48 Year
  Sex: Female
  Weight: 136 kg

DRUGS (1)
  1. VIAGRA [Suspect]
     Indication: ERECTILE DYSFUNCTION
     Dosage: 70 MG, DAILY
     Dates: end: 201403

REACTIONS (3)
  - Blindness [Unknown]
  - Convulsion [Unknown]
  - Off label use [Unknown]
